FAERS Safety Report 7749483-X (Version None)
Quarter: 2011Q3

REPORT INFORMATION
  Report Type: 
  Country: None (occurrence: None)
  Receive Date: 20110914
  Receipt Date: 20110831
  Transmission Date: 20111222
  Serious: Yes (Other)
  Sender: FDA-Public Use
  Company Number: US-ENDO PHARMACEUTICALS INC.-OPER20110214

PATIENT
  Sex: Female
  Weight: 56.75 kg

DRUGS (4)
  1. OPANA ER [Suspect]
     Indication: BONE PAIN
     Route: 048
     Dates: start: 20110801, end: 20110801
  2. OPANA ER [Suspect]
     Dosage: 20 MG
     Route: 048
     Dates: start: 20110801
  3. EPIPEN [Concomitant]
     Indication: HYPERSENSITIVITY
     Dosage: UNK
  4. BENADRYL [Concomitant]
     Indication: HYPERSENSITIVITY
     Dosage: 50 MG
     Route: 048

REACTIONS (3)
  - WRONG TECHNIQUE IN DRUG USAGE PROCESS [None]
  - DIARRHOEA [None]
  - NAUSEA [None]
